FAERS Safety Report 4697637-1 (Version None)
Quarter: 2005Q2

REPORT INFORMATION
  Report Type: 
  Country: None (occurrence: None)
  Receive Date: 20050620
  Receipt Date: 20040603
  Transmission Date: 20051028
  Serious: Yes (Hospitalization)
  Sender: FDA-Public Use
  Company Number: 200414264US

PATIENT
  Age: 46 Year
  Sex: Male

DRUGS (9)
  1. LANTUS [Suspect]
     Indication: DIABETES MELLITUS NON-INSULIN-DEPENDENT
     Dosage: 30 U HS SC
     Route: 058
     Dates: end: 20040603
  2. LANTUS [Suspect]
     Indication: DIABETES MELLITUS NON-INSULIN-DEPENDENT
     Dosage: 30 U HS SC
     Route: 058
     Dates: start: 20040603, end: 20040603
  3. LANTUS [Suspect]
     Indication: DIABETES MELLITUS NON-INSULIN-DEPENDENT
     Dosage: 30 U HS SC
     Route: 058
     Dates: start: 20040604
  4. AVANDIA [Concomitant]
  5. COZAAR [Concomitant]
  6. ASPIRIN [Concomitant]
  7. LIPITOR [Concomitant]
  8. PEPCID [Concomitant]
  9. GLYCERYL TRINITRATE (NITRO) [Concomitant]

REACTIONS (1)
  - HYPERGLYCAEMIA [None]
